FAERS Safety Report 23029916 (Version 2)
Quarter: 2023Q4

REPORT INFORMATION
  Report Type: Report from Study
  Country: US (occurrence: US)
  Receive Date: 20231005
  Receipt Date: 20231215
  Transmission Date: 20240109
  Serious: Yes (Other)
  Sender: FDA-Public Use
  Company Number: US-ABBVIE-5434403

PATIENT
  Sex: Female

DRUGS (3)
  1. SKYRIZI [Suspect]
     Active Substance: RISANKIZUMAB-RZAA
     Indication: Psoriatic arthropathy
     Dosage: MISSED DOSE OF WEEK 4?FORM STRENGTH: 150MG/ML?AT WEEK 4
     Route: 058
     Dates: start: 20231003, end: 20231003
  2. SKYRIZI [Suspect]
     Active Substance: RISANKIZUMAB-RZAA
     Indication: Psoriasis
     Dosage: WEEK 0?FORM STRENGTH: 150MG/ML
     Route: 058
     Dates: start: 20230831, end: 20230831
  3. SKYRIZI [Suspect]
     Active Substance: RISANKIZUMAB-RZAA
     Indication: Psoriatic arthropathy
     Dosage: EVERY 12 WEEKS THEREAFTER, 1ST ADMINISTRATION DATE-2023
     Route: 058

REACTIONS (4)
  - Jaw disorder [Unknown]
  - Psoriasis [Unknown]
  - Pain [Unknown]
  - Gait disturbance [Unknown]

NARRATIVE: CASE EVENT DATE: 20230101
